FAERS Safety Report 7150255-8 (Version None)
Quarter: 2010Q4

REPORT INFORMATION
  Report Type: 
  Country: None (occurrence: None)
  Receive Date: 20101123
  Receipt Date: 20100907
  Transmission Date: 20110411
  Serious: No
  Sender: FDA-Public Use
  Company Number: 018381

PATIENT
  Sex: Female
  Weight: 82 kg

DRUGS (4)
  1. CIMZIA [Suspect]
     Indication: CROHN'S DISEASE
     Dosage: TWO SHOTS, EVERY MONTH SUBCUTANEOUS
     Route: 058
     Dates: start: 20100401
  2. ENTOCORT EC [Concomitant]
  3. NEXIUM [Concomitant]
  4. DARVOCET [Concomitant]

REACTIONS (1)
  - INSOMNIA [None]
